FAERS Safety Report 23362138 (Version 1)
Quarter: 2024Q1

REPORT INFORMATION
  Report Type: Spontaneous
  Country: US (occurrence: None)
  Receive Date: 20240103
  Receipt Date: 20240103
  Transmission Date: 20240410
  Serious: Yes (Disabling)
  Sender: FDA-Public Use
  Company Number: None

PATIENT
  Age: 37 Year
  Sex: Female
  Weight: 83.25 kg

DRUGS (4)
  1. LEVAQUIN [Suspect]
     Active Substance: LEVOFLOXACIN
     Indication: Coccidioidomycosis
  2. FLUCONAZOLE [Suspect]
     Active Substance: FLUCONAZOLE
  3. ADDERALL [Concomitant]
     Active Substance: AMPHETAMINE ASPARTATE\AMPHETAMINE SULFATE\DEXTROAMPHETAMINE SACCHARATE\DEXTROAMPHETAMINE SULFATE
  4. proponalol [Concomitant]

REACTIONS (3)
  - Tendon discomfort [None]
  - Plantar fasciitis [None]
  - Posterior tibial tendon dysfunction [None]

NARRATIVE: CASE EVENT DATE: 20150801
